FAERS Safety Report 24001499 (Version 1)
Quarter: 2024Q2

REPORT INFORMATION
  Report Type: Spontaneous
  Country: BR (occurrence: BR)
  Receive Date: 20240621
  Receipt Date: 20240621
  Transmission Date: 20240716
  Serious: Yes (Other)
  Sender: FDA-Public Use
  Company Number: BR-INSUD PHARMA-2406BR04824

PATIENT

DRUGS (1)
  1. TESTOSTERONE CYPIONATE [Suspect]
     Active Substance: TESTOSTERONE CYPIONATE
     Indication: Secondary hypogonadism
     Dosage: 200 MILLIGRAM EVERY 14-21 DAYS
     Route: 030

REACTIONS (1)
  - Hyperprolactinaemia [Unknown]
